FAERS Safety Report 7610647-7 (Version None)
Quarter: 2011Q3

REPORT INFORMATION
  Report Type: 
  Country: None (occurrence: None)
  Receive Date: 20110715
  Receipt Date: 20110707
  Transmission Date: 20111222
  Serious: Yes (Other)
  Sender: FDA-Public Use
  Company Number: CA-BAYER-2011-058890

PATIENT
  Age: 16 Year
  Sex: Female
  Weight: 55.782 kg

DRUGS (2)
  1. APO-AMOXI [Concomitant]
  2. YAZ [Suspect]
     Dosage: UNK, QD
     Route: 048

REACTIONS (14)
  - AFFECT LABILITY [None]
  - ANXIETY [None]
  - MIGRAINE WITH AURA [None]
  - OEDEMA PERIPHERAL [None]
  - ABDOMINAL PAIN [None]
  - BLINDNESS [None]
  - DYSPNOEA [None]
  - CONFUSIONAL STATE [None]
  - HEADACHE [None]
  - KIDNEY INFECTION [None]
  - INSOMNIA [None]
  - PALPITATIONS [None]
  - RENAL PAIN [None]
  - BURNING SENSATION [None]
